FAERS Safety Report 5425773-0 (Version None)
Quarter: 2007Q3

REPORT INFORMATION
  Report Type: 
  Country: None (occurrence: None)
  Receive Date: 20070825
  Receipt Date: 20070815
  Transmission Date: 20080115
  Serious: Yes (Hospitalization)
  Sender: FDA-Public Use
  Company Number: DE-SHR-DE-2007-027055

PATIENT
  Age: 29 Year
  Sex: Female
  Weight: 43 kg

DRUGS (5)
  1. BETAFERON [Suspect]
     Dosage: .25 ML, UNK
     Route: 058
     Dates: start: 20070702
  2. BETAFERON [Suspect]
     Dosage: .5 ML, UNK
     Route: 058
  3. BETAFERON [Suspect]
     Dosage: .75 ML, UNK
     Route: 058
  4. BETAFERON [Suspect]
     Dosage: 1 ML, UNK
     Route: 058
  5. MICROGYNON 30 (21) [Concomitant]
     Indication: ORAL CONTRACEPTION
     Dosage: 1 TAB(S), UNK
     Route: 048
     Dates: start: 19930101

REACTIONS (2)
  - RESTLESSNESS [None]
  - VISUAL DISTURBANCE [None]
